APPROVED DRUG PRODUCT: MYCOPHENOLATE MOFETIL
Active Ingredient: MYCOPHENOLATE MOFETIL
Strength: 500MG
Dosage Form/Route: TABLET;ORAL
Application: A090464 | Product #001
Applicant: DR REDDYS LABORATORIES LTD
Approved: Sep 13, 2010 | RLD: No | RS: No | Type: DISCN